FAERS Safety Report 9428667 (Version 1)
Quarter: 2013Q3

REPORT INFORMATION
  Report Type: Report from Study
  Country: US (occurrence: US)
  Receive Date: 20130730
  Receipt Date: 20130730
  Transmission Date: 20140515
  Serious: No
  Sender: FDA-Public Use
  Company Number: US-ABBOTT-12P-163-1021834-00

PATIENT
  Age: 58 Year
  Sex: Female
  Weight: 59.02 kg

DRUGS (1)
  1. NIASPAN (COATED) [Suspect]
     Indication: BLOOD CHOLESTEROL INCREASED
     Dates: start: 201212

REACTIONS (2)
  - Bowel movement irregularity [Not Recovered/Not Resolved]
  - Faeces pale [Not Recovered/Not Resolved]
